FAERS Safety Report 9690111 (Version 1)
Quarter: 2013Q4

REPORT INFORMATION
  Report Type: Spontaneous
  Country: PL (occurrence: PL)
  Receive Date: 20131115
  Receipt Date: 20131115
  Transmission Date: 20140711
  Serious: Yes (Other)
  Sender: FDA-Public Use
  Company Number: PHHY2013PL125935

PATIENT
  Age: 43 Year
  Sex: Male

DRUGS (6)
  1. EVEROLIMUS [Suspect]
     Indication: IMMUNOSUPPRESSION
     Dosage: UNK
     Dates: end: 201201
  2. MYCOPHENOLATE MOFETIL [Concomitant]
     Indication: IMMUNOSUPPRESSION
     Dosage: 2.0  G/D
  3. MYCOPHENOLATE MOFETIL [Concomitant]
     Dosage: 1.0 G/D
  4. MYCOPHENOLATE MOFETIL [Concomitant]
     Dosage: 1.5 G/D
  5. CORTICOSTEROIDS [Concomitant]
  6. ENALAPRIL [Concomitant]
     Indication: PROTEINURIA

REACTIONS (6)
  - Skin ulcer [Recovering/Resolving]
  - Proteinuria [Recovering/Resolving]
  - Oedema peripheral [Recovered/Resolved]
  - Blood creatine increased [Unknown]
  - Pain in extremity [Recovering/Resolving]
  - Glomerular filtration rate decreased [Unknown]
